FAERS Safety Report 13047843 (Version 2)
Quarter: 2017Q4

REPORT INFORMATION
  Report Type: Spontaneous
  Country: AU (occurrence: AU)
  Receive Date: 20161220
  Receipt Date: 20171121
  Transmission Date: 20180320
  Serious: Yes (Other)
  Sender: FDA-Public Use
  Company Number: PHHY2016AU173248

PATIENT
  Age: 38 Year
  Sex: Female

DRUGS (1)
  1. METHOTREXATE. [Suspect]
     Active Substance: METHOTREXATE
     Indication: ECTOPIC PREGNANCY
     Dosage: UNK UNK, ONCE/SINGLE
     Route: 065

REACTIONS (4)
  - Ruptured ectopic pregnancy [Unknown]
  - Treatment failure [Unknown]
  - Pain [Unknown]
  - Maternal exposure during pregnancy [Unknown]
